FAERS Safety Report 7358272-X (Version None)
Quarter: 2011Q1

REPORT INFORMATION
  Report Type: 
  Country: None (occurrence: None)
  Receive Date: 20110317
  Receipt Date: 20110311
  Transmission Date: 20110831
  Serious: Yes (Hospitalization)
  Sender: FDA-Public Use
  Company Number: US-ROCHE-765095

PATIENT
  Age: 46 Year
  Sex: Female

DRUGS (7)
  1. CICLETANINE HYDROCHLORIDE [Suspect]
     Indication: PULMONARY ARTERIAL HYPERTENSION
     Route: 048
     Dates: start: 20100503
  2. SEROQUEL [Concomitant]
     Indication: DEPRESSION
     Dates: start: 19960901
  3. INVIRASE [Suspect]
     Indication: HIV INFECTION
     Route: 065
     Dates: start: 19960901
  4. ASCORBIC ACID [Concomitant]
     Indication: SUPPLEMENTATION THERAPY
     Dates: start: 20090101
  5. RITONAVIR [Suspect]
     Indication: HIV INFECTION
     Route: 065
     Dates: start: 19960901
  6. AMBRISENTAN [Concomitant]
     Indication: PULMONARY HYPERTENSION
     Dosage: LETAIRIS
     Dates: start: 20070731
  7. POTASSIUM CHLORIDE [Concomitant]
     Indication: HYPOKALAEMIA
     Dates: start: 20070801

REACTIONS (1)
  - HYPOKALAEMIA [None]
